FAERS Safety Report 9935266 (Version 1)
Quarter: 2014Q1

REPORT INFORMATION
  Report Type: Report from Study
  Country: BD (occurrence: BD)
  Receive Date: 20140228
  Receipt Date: 20140228
  Transmission Date: 20141002
  Serious: Yes (Death, Hospitalization)
  Sender: FDA-Public Use
  Company Number: PHHY2014BD024289

PATIENT
  Age: 78 Year
  Sex: Male

DRUGS (1)
  1. EXELON PATCH [Suspect]
     Indication: DEMENTIA
     Dosage: 5CM PATCH (4.6MG/24HOURS) DAILY
     Route: 062

REACTIONS (2)
  - Dementia [Fatal]
  - Aspiration [Unknown]
